FAERS Safety Report 4426498-0 (Version None)
Quarter: 2004Q3

REPORT INFORMATION
  Report Type: 
  Country: None (occurrence: None)
  Receive Date: 20040816
  Receipt Date: 20040805
  Transmission Date: 20050211
  Serious: Yes (Hospitalization)
  Sender: FDA-Public Use
  Company Number: CA-JNJFOC-20040105685

PATIENT
  Sex: Female

DRUGS (27)
  1. REMICADE [Suspect]
     Route: 042
     Dates: start: 20010426
  2. REMICADE [Suspect]
     Route: 042
     Dates: start: 20010426
  3. REMICADE [Suspect]
     Dosage: DUE TO BUTTOCK ABCESS
     Route: 042
     Dates: start: 20010426
  4. REMICADE [Suspect]
     Route: 042
     Dates: start: 20010426
  5. REMICADE [Suspect]
     Dosage: SECONDARY TO UVEITIS
     Route: 042
     Dates: start: 20010426
  6. REMICADE [Suspect]
     Dosage: INCREASED DUE TO UVEITIS.
     Route: 042
     Dates: start: 20010426
  7. REMICADE [Suspect]
     Indication: RHEUMATOID ARTHRITIS
     Route: 042
     Dates: start: 20010426
  8. ALPHAGAN [Concomitant]
  9. K-DUR 10 [Concomitant]
     Dosage: 20 MCG QD
     Route: 049
  10. LASIX [Concomitant]
  11. CELLCEPT [Concomitant]
     Dates: start: 20040601
  12. VIOXX [Concomitant]
     Dates: start: 20041001
  13. PREDNISONE [Concomitant]
  14. COZAAR [Concomitant]
  15. DIDROCAL [Concomitant]
  16. DIDROCAL [Concomitant]
  17. LANOXIN [Concomitant]
     Dosage: FOR VASCULAR CARDIOMYOPATHY
  18. ACULAR [Concomitant]
     Indication: UVEITIS
  19. COSOPT [Concomitant]
  20. COSOPT [Concomitant]
     Indication: UVEITIS
  21. FLAREX [Concomitant]
     Indication: UVEITIS
  22. LOSEC [Concomitant]
  23. VITAMIN D [Concomitant]
  24. COLACE [Concomitant]
  25. SENNA [Concomitant]
  26. TYLENOL [Concomitant]
  27. ATIVAN [Concomitant]

REACTIONS (9)
  - CELLULITIS [None]
  - HYPOAESTHESIA [None]
  - MYELOPATHY [None]
  - PURULENCE [None]
  - SPINAL CORD COMPRESSION [None]
  - SUBCUTANEOUS ABSCESS [None]
  - UVEITIS [None]
  - WOUND INFECTION [None]
  - WOUND SECRETION [None]
